FAERS Safety Report 20876617 (Version 3)
Quarter: 2022Q4

REPORT INFORMATION
  Report Type: Report from Study
  Country: ES (occurrence: ES)
  Receive Date: 20220526
  Receipt Date: 20221101
  Transmission Date: 20230113
  Serious: Yes (Other)
  Sender: FDA-Public Use
  Company Number: ES-TAKEDA-2021TUS052274

PATIENT
  Age: 3 Year
  Sex: Female

DRUGS (40)
  1. TEDUGLUTIDE [Suspect]
     Active Substance: TEDUGLUTIDE
     Indication: Short-bowel syndrome
     Dosage: 0.4 MILLIGRAM, QD
     Route: 042
     Dates: start: 20190723, end: 20201204
  2. TEDUGLUTIDE [Suspect]
     Active Substance: TEDUGLUTIDE
     Indication: Short-bowel syndrome
     Dosage: 0.4 MILLIGRAM, QD
     Route: 042
     Dates: start: 20190723, end: 20201204
  3. TEDUGLUTIDE [Suspect]
     Active Substance: TEDUGLUTIDE
     Indication: Short-bowel syndrome
     Dosage: 0.4 MILLIGRAM, QD
     Route: 042
     Dates: start: 20190723, end: 20201204
  4. TEDUGLUTIDE [Suspect]
     Active Substance: TEDUGLUTIDE
     Indication: Short-bowel syndrome
     Dosage: 0.4 MILLIGRAM, QD
     Route: 042
     Dates: start: 20190723, end: 20201204
  5. TEDUGLUTIDE [Suspect]
     Active Substance: TEDUGLUTIDE
     Dosage: 0.4 MILLIGRAM, QD
     Route: 042
     Dates: start: 20201207, end: 20210707
  6. TEDUGLUTIDE [Suspect]
     Active Substance: TEDUGLUTIDE
     Dosage: 0.4 MILLIGRAM, QD
     Route: 042
     Dates: start: 20201207, end: 20210707
  7. TEDUGLUTIDE [Suspect]
     Active Substance: TEDUGLUTIDE
     Dosage: 0.4 MILLIGRAM, QD
     Route: 042
     Dates: start: 20201207, end: 20210707
  8. TEDUGLUTIDE [Suspect]
     Active Substance: TEDUGLUTIDE
     Dosage: 0.4 MILLIGRAM, QD
     Route: 042
     Dates: start: 20201207, end: 20210707
  9. TEDUGLUTIDE [Suspect]
     Active Substance: TEDUGLUTIDE
     Dosage: 0.7 MILLIGRAM, QD
     Route: 042
     Dates: start: 20210707, end: 20210813
  10. TEDUGLUTIDE [Suspect]
     Active Substance: TEDUGLUTIDE
     Dosage: 0.7 MILLIGRAM, QD
     Route: 042
     Dates: start: 20210707, end: 20210813
  11. TEDUGLUTIDE [Suspect]
     Active Substance: TEDUGLUTIDE
     Dosage: 0.7 MILLIGRAM, QD
     Route: 042
     Dates: start: 20210707, end: 20210813
  12. TEDUGLUTIDE [Suspect]
     Active Substance: TEDUGLUTIDE
     Dosage: 0.7 MILLIGRAM, QD
     Route: 042
     Dates: start: 20210707, end: 20210813
  13. TEDUGLUTIDE [Suspect]
     Active Substance: TEDUGLUTIDE
     Dosage: 0.7 MILLIGRAM, QD
     Route: 042
     Dates: start: 20220817
  14. TEDUGLUTIDE [Suspect]
     Active Substance: TEDUGLUTIDE
     Dosage: 0.7 MILLIGRAM, QD
     Route: 042
     Dates: start: 20220817
  15. TEDUGLUTIDE [Suspect]
     Active Substance: TEDUGLUTIDE
     Dosage: 0.7 MILLIGRAM, QD
     Route: 042
     Dates: start: 20220817
  16. TEDUGLUTIDE [Suspect]
     Active Substance: TEDUGLUTIDE
     Dosage: 0.7 MILLIGRAM, QD
     Route: 042
     Dates: start: 20220817
  17. SULFAMETHOXAZOLE\TRIMETHOPRIM [Concomitant]
     Active Substance: SULFAMETHOXAZOLE\TRIMETHOPRIM
     Indication: Bacterial infection
     Dosage: 20 MILLIGRAM, BID
     Route: 048
     Dates: start: 20191128, end: 202004
  18. METRONIDAZOLE [Concomitant]
     Active Substance: METRONIDAZOLE
     Indication: Bacterial infection
     Dosage: 62.50 MILLIGRAM, BID
     Route: 048
     Dates: start: 20191128, end: 202004
  19. VITAMIN D3 [Concomitant]
     Active Substance: CHOLECALCIFEROL
     Indication: Vitamin D deficiency
     Dosage: 400 INTERNATIONAL UNIT, QD
     Route: 048
     Dates: start: 2017
  20. VITAMIN D3 [Concomitant]
     Active Substance: CHOLECALCIFEROL
     Dosage: 2400 INTERNATIONAL UNIT, QD
     Route: 048
     Dates: start: 20180824, end: 20190628
  21. HIBOR [Concomitant]
     Indication: Thrombosis
     Dosage: 1000 INTERNATIONAL UNIT, QD
     Route: 058
     Dates: start: 201808, end: 20210911
  22. FERROGLYCINE SULFATE [Concomitant]
     Active Substance: FERROGLYCINE SULFATE
     Indication: Anaemia
     Dosage: 1 DROPS
     Route: 048
     Dates: start: 20200520, end: 20200904
  23. RESINCOLESTIRAMINA [Concomitant]
     Indication: Diarrhoea
     Dosage: 1500 MILLIGRAM, BID
     Route: 048
     Dates: start: 20211022
  24. RESINCOLESTIRAMINA [Concomitant]
     Dosage: 1000 MILLIGRAM, BID
     Route: 048
     Dates: start: 201811, end: 20211022
  25. OMEPRAZOLE [Concomitant]
     Active Substance: OMEPRAZOLE
     Indication: Gastroenteritis
     Dosage: 12 MILLIGRAM
     Route: 048
     Dates: start: 20210705, end: 20220316
  26. OMEPRAZOLE [Concomitant]
     Active Substance: OMEPRAZOLE
     Indication: Hypergastrinaemia
     Dosage: 8 MILLIGRAM, QD
     Route: 048
     Dates: start: 201809, end: 20190925
  27. Glutaferro [Concomitant]
     Indication: Iron deficiency
     Dosage: 30 MILLIGRAM, QD
     Route: 048
     Dates: start: 20210705, end: 20220316
  28. Glutaferro [Concomitant]
     Dosage: 60 MILLIGRAM, QD
     Route: 048
     Dates: start: 20220316, end: 20220607
  29. VITAMIN B12 [Concomitant]
     Active Substance: CYANOCOBALAMIN
     Indication: Vitamin B12 deficiency
     Dosage: 1 MILLIGRAM, 2/MONTH
     Route: 030
     Dates: start: 20210705, end: 20220203
  30. ACETAMINOPHEN [Concomitant]
     Active Substance: ACETAMINOPHEN
     Indication: Pyrexia
     Dosage: 120 MILLIGRAM, TID
     Route: 048
     Dates: start: 20210315, end: 20210316
  31. AMOXICILLIN [Concomitant]
     Active Substance: AMOXICILLIN
     Indication: Respiratory tract infection
     Dosage: 150 MILLIGRAM, TID
     Route: 048
     Dates: start: 20190925, end: 20191005
  32. URSODIOL [Concomitant]
     Active Substance: URSODIOL
     Dosage: 37.5 MILLIGRAM, BID
     Route: 048
     Dates: start: 201709, end: 20210705
  33. Salvacolina [Concomitant]
     Indication: Diarrhoea
     Dosage: 0.4 MILLIGRAM, TID
     Route: 048
     Dates: start: 20191128, end: 20210118
  34. Anso [Concomitant]
     Indication: Rectal haemorrhage
     Dosage: UNK UNK, BID
     Route: 054
     Dates: start: 20210911, end: 20210918
  35. CYANOCOBALAMIN [Concomitant]
     Active Substance: CYANOCOBALAMIN
     Indication: Vitamin B12 deficiency
     Dosage: 1 MILLIGRAM
     Route: 030
     Dates: start: 20210705, end: 20220203
  36. FERPLEX [Concomitant]
     Indication: Iron deficiency anaemia
     Dosage: 40 MILLIGRAM, QD
     Route: 048
     Dates: start: 20220607
  37. VITAMIN D [Concomitant]
     Active Substance: VITAMIN D NOS
     Indication: Vitamin D deficiency
     Dosage: 80 INTERNATIONAL UNIT, QD
     Route: 048
     Dates: start: 20191229, end: 20200323
  38. VITAMIN D [Concomitant]
     Active Substance: VITAMIN D NOS
     Dosage: 120 INTERNATIONAL UNIT, QD
     Route: 048
     Dates: start: 20200323, end: 20200904
  39. VITAMIN D [Concomitant]
     Active Substance: VITAMIN D NOS
     Dosage: 200 INTERNATIONAL UNIT, QD
     Route: 048
     Dates: start: 20200904, end: 20220607
  40. VITAMIN D [Concomitant]
     Active Substance: VITAMIN D NOS
     Dosage: 400 INTERNATIONAL UNIT, QD
     Route: 048
     Dates: start: 20220607

REACTIONS (1)
  - Rectal haemorrhage [Recovered/Resolved]

NARRATIVE: CASE EVENT DATE: 20210909
